FAERS Safety Report 14874469 (Version 3)
Quarter: 2018Q2

REPORT INFORMATION
  Report Type: Report from Study
  Country: PT (occurrence: PT)
  Receive Date: 20180510
  Receipt Date: 20180531
  Transmission Date: 20180711
  Serious: Yes (Other)
  Sender: FDA-Public Use
  Company Number: PT-AUROBINDO-AUR-APL-2018-025133

PATIENT
  Age: 85 Year

DRUGS (2)
  1. AMIODARONE [Suspect]
     Active Substance: AMIODARONE
     Indication: PRODUCT USED FOR UNKNOWN INDICATION
     Dosage: ()
     Route: 065
  2. DABIGATRAN [Interacting]
     Active Substance: DABIGATRAN
     Indication: ANTICOAGULANT THERAPY
     Dosage: ()
     Route: 048

REACTIONS (5)
  - Anaemia [Unknown]
  - Presyncope [Unknown]
  - Melaena [Unknown]
  - Gastric haemorrhage [Unknown]
  - Labelled drug-drug interaction medication error [Unknown]
